FAERS Safety Report 10072895 (Version 4)
Quarter: 2014Q2

REPORT INFORMATION
  Report Type: Spontaneous
  Country: US (occurrence: US)
  Receive Date: 20140411
  Receipt Date: 20140514
  Transmission Date: 20141212
  Serious: Yes (Hospitalization, Other)
  Sender: FDA-Public Use
  Company Number: US-BAXTER-2014BAX017732

PATIENT
  Age: 87 Year
  Sex: Female

DRUGS (1)
  1. DIANEAL LOW CALCIUM [Suspect]
     Indication: RENAL FAILURE CHRONIC
     Route: 033

REACTIONS (4)
  - Neoplasm malignant [Unknown]
  - Basal cell carcinoma [Recovering/Resolving]
  - Weight increased [Recovering/Resolving]
  - Peripheral swelling [Recovering/Resolving]
